FAERS Safety Report 10239017 (Version 1)
Quarter: 2014Q1

REPORT INFORMATION
  Report Type: Spontaneous
  Country: US (occurrence: None)
  Receive Date: 20140306
  Receipt Date: 20140306
  Transmission Date: 20141002
  Serious: Yes (Hospitalization, Other)
  Sender: FDA-Public Use
  Company Number: 163-21880-13041143

PATIENT
  Age: 74 Year
  Sex: Male

DRUGS (3)
  1. REVLIMID [Suspect]
     Indication: PLASMA CELL MYELOMA
     Dosage: 21 IN 21 D
     Route: 048
     Dates: start: 20130302, end: 20130322
  2. MICARDIS (TELMISARTAN) [Concomitant]
  3. ASA (ACETYLSALICYLIC ACID) [Concomitant]

REACTIONS (3)
  - Tumour lysis syndrome [None]
  - Renal failure [None]
  - Gout [None]
